FAERS Safety Report 8103433-5 (Version None)
Quarter: 2012Q1

REPORT INFORMATION
  Report Type: 
  Country: None (occurrence: None)
  Receive Date: 20120201
  Receipt Date: 20120126
  Transmission Date: 20120608
  Serious: Yes (Other)
  Sender: FDA-Public Use
  Company Number: US-PFIZER INC-2012022977

PATIENT
  Sex: Male
  Weight: 85.3 kg

DRUGS (2)
  1. TORISEL [Suspect]
     Indication: METASTASES TO ADRENALS
  2. TORISEL [Suspect]
     Indication: RENAL CELL CARCINOMA
     Dosage: 25 MG EACH TIME, TOOK FOR FOUR TIMES
     Dates: start: 20111215

REACTIONS (1)
  - HEPATIC ENZYME INCREASED [None]
